FAERS Safety Report 9093570 (Version 1)
Quarter: 2013Q1

REPORT INFORMATION
  Report Type: Spontaneous
  Country: US (occurrence: US)
  Receive Date: 20130218
  Receipt Date: 20130218
  Transmission Date: 20140127
  Serious: Yes (Hospitalization)
  Sender: FDA-Public Use
  Company Number: US-ELI_LILLY_AND_COMPANY-US201204003936

PATIENT
  Sex: Female

DRUGS (2)
  1. FORTEO [Suspect]
     Indication: OSTEOPOROSIS
     Dosage: UNK UNK, QD
  2. FORTEO [Suspect]
     Dosage: UNK, QD

REACTIONS (4)
  - Malaise [Unknown]
  - Impaired gastric emptying [Unknown]
  - Abdominal discomfort [Unknown]
  - Injection site pain [Unknown]
